FAERS Safety Report 25064817 (Version 1)
Quarter: 2025Q1

REPORT INFORMATION
  Report Type: Spontaneous
  Country: US (occurrence: US)
  Receive Date: 20250311
  Receipt Date: 20250311
  Transmission Date: 20250408
  Serious: No
  Sender: SUNOVION
  Company Number: US-SMPA-2025SPA001644

PATIENT

DRUGS (2)
  1. GEMTESA [Suspect]
     Active Substance: VIBEGRON
     Indication: Hypertonic bladder
     Dosage: 75 MG, QD, ABOUT A YEAR AGO
     Route: 048
  2. Corvadil [Concomitant]
     Route: 065

REACTIONS (2)
  - Urinary incontinence [Unknown]
  - Therapeutic product effect incomplete [Unknown]
